FAERS Safety Report 5767088-7 (Version None)
Quarter: 2008Q2

REPORT INFORMATION
  Report Type: 
  Country: None (occurrence: None)
  Receive Date: 20080612
  Receipt Date: 20080606
  Transmission Date: 20081010
  Serious: Yes (Other)
  Sender: FDA-Public Use
  Company Number: US-ASTRAZENECA-2008UW11406

PATIENT
  Age: 936 Month
  Sex: Female

DRUGS (2)
  1. CRESTOR [Suspect]
     Route: 048
     Dates: start: 20030101
  2. ZETIA [Concomitant]
     Indication: BLOOD PRESSURE

REACTIONS (1)
  - DIABETES MELLITUS [None]
